FAERS Safety Report 16099739 (Version 2)
Quarter: 2019Q1

REPORT INFORMATION
  Report Type: Report from Study
  Country: US (occurrence: US)
  Receive Date: 20190321
  Receipt Date: 20190329
  Transmission Date: 20190418
  Serious: Yes (Hospitalization)
  Sender: FDA-Public Use
  Company Number: US-TEVA-2019-US-1022358

PATIENT
  Sex: Female

DRUGS (5)
  1. AUSTEDO [Suspect]
     Active Substance: DEUTETRABENAZINE
     Dosage: 48 MILLIGRAM DAILY; CURRENT DOSE
     Route: 065
  2. AUSTEDO [Suspect]
     Active Substance: DEUTETRABENAZINE
     Indication: HUNTINGTON^S DISEASE
     Dosage: SWITCHER. TITRATING PATIENT.
     Route: 065
     Dates: start: 20181228
  3. LOSARTAN. [Interacting]
     Active Substance: LOSARTAN
     Indication: BLOOD PRESSURE INCREASED
     Route: 065
  4. AMANTADINE. [Interacting]
     Active Substance: AMANTADINE HYDROCHLORIDE
     Route: 065
  5. AUSTEDO [Suspect]
     Active Substance: DEUTETRABENAZINE
     Dosage: 24 MILLIGRAM DAILY;
     Route: 065

REACTIONS (5)
  - Blood pressure increased [Unknown]
  - Dysphonia [Unknown]
  - Palpitations [Unknown]
  - Hallucination [Recovered/Resolved]
  - Drug interaction [Unknown]
